FAERS Safety Report 6444911-4 (Version None)
Quarter: 2009Q4

REPORT INFORMATION
  Report Type: 
  Country: None (occurrence: None)
  Receive Date: 20091117
  Receipt Date: 20091117
  Transmission Date: 20100525
  Serious: No
  Sender: FDA-Public Use
  Company Number: None

PATIENT
  Sex: Male

DRUGS (1)
  1. BACTRIM DS [Suspect]
     Dosage: 2 TABLETS BID TWICE DAILY ORAL
     Route: 048
     Dates: start: 20091009, end: 20091018

REACTIONS (1)
  - URTICARIA [None]
